FAERS Safety Report 12239190 (Version 1)
Quarter: 2016Q2

REPORT INFORMATION
  Report Type: Spontaneous
  Country: CN (occurrence: CN)
  Receive Date: 20160405
  Receipt Date: 20160405
  Transmission Date: 20160815
  Serious: Yes (Other)
  Sender: FDA-Public Use
  Company Number: CN-BAXTER-2016BAX016819

PATIENT
  Age: 4 Year
  Sex: Male
  Weight: 15 kg

DRUGS (8)
  1. MUCOSOLVAN [Suspect]
     Active Substance: AMBROXOL HYDROCHLORIDE
     Dosage: DOSE RE-INTODUCED
     Route: 041
  2. 0.9% SODIUM CHLORIDE INJECTION [Suspect]
     Active Substance: SODIUM CHLORIDE
     Dosage: DOSE RE-INTODUCED
     Route: 041
  3. GLUCOSE [Suspect]
     Active Substance: DEXTROSE
     Dosage: DOSE RE-INTODUCED
     Route: 041
  4. MUCOSOLVAN [Suspect]
     Active Substance: AMBROXOL HYDROCHLORIDE
     Indication: UPPER RESPIRATORY TRACT INFECTION
     Route: 041
     Dates: start: 20150923, end: 20150923
  5. 0.9% SODIUM CHLORIDE INJECTION [Suspect]
     Active Substance: SODIUM CHLORIDE
     Indication: MEDICATION DILUTION
     Route: 041
     Dates: start: 20150923, end: 20150923
  6. AOSHU [Suspect]
     Active Substance: CEFUROXIME SODIUM
     Indication: UPPER RESPIRATORY TRACT INFECTION
     Route: 041
     Dates: start: 20150923, end: 20150923
  7. AOSHU [Suspect]
     Active Substance: CEFUROXIME SODIUM
     Dosage: DOSE RE-INTODUCED
     Route: 041
  8. GLUCOSE [Suspect]
     Active Substance: DEXTROSE
     Indication: MEDICATION DILUTION
     Route: 041
     Dates: start: 20150923, end: 20150923

REACTIONS (4)
  - Skin test positive [Recovering/Resolving]
  - Erythema [Recovering/Resolving]
  - Pruritus [Recovering/Resolving]
  - Rash generalised [Recovering/Resolving]

NARRATIVE: CASE EVENT DATE: 20150923
